FAERS Safety Report 14289118 (Version 1)
Quarter: 2017Q4

REPORT INFORMATION
  Report Type: Spontaneous
  Country: US (occurrence: US)
  Receive Date: 20171215
  Receipt Date: 20171215
  Transmission Date: 20180321
  Serious: No
  Sender: FDA-Public Use
  Company Number: US-PFIZER INC-2017534868

PATIENT
  Age: 51 Year
  Sex: Male
  Weight: 77.11 kg

DRUGS (1)
  1. ADVIL [Suspect]
     Active Substance: IBUPROFEN
     Dosage: FOUR 200 MG CAPSULES ONCE PER DAY AS NEEDED
     Route: 048
     Dates: start: 20171212, end: 20171212

REACTIONS (2)
  - Gastric disorder [Not Recovered/Not Resolved]
  - Incorrect dose administered [Unknown]

NARRATIVE: CASE EVENT DATE: 20171212
